FAERS Safety Report 4361367-6 (Version None)
Quarter: 2004Q2

REPORT INFORMATION
  Report Type: 
  Country: None (occurrence: None)
  Receive Date: 20040519
  Receipt Date: 20040519
  Transmission Date: 20050107
  Serious: No
  Sender: FDA-Public Use
  Company Number: None

PATIENT
  Sex: Female

DRUGS (1)
  1. SYSTANE LUBRICANT EYE DROPS ALCON LABORATORY [Suspect]
     Dates: start: 20040315, end: 20040401

REACTIONS (1)
  - EYE PAIN [None]
